FAERS Safety Report 11139861 (Version 1)
Quarter: 2015Q2

REPORT INFORMATION
  Report Type: Spontaneous
  Country: US (occurrence: US)
  Receive Date: 20150527
  Receipt Date: 20150527
  Transmission Date: 20150821
  Serious: No
  Sender: FDA-Public Use
  Company Number: US-ENDO PHARMACEUTICALS INC.-SPLN20150011

PATIENT
  Age: 10 Year
  Sex: Male
  Weight: 48.5 kg

DRUGS (1)
  1. SUPPRELIN LA [Suspect]
     Active Substance: HISTRELIN ACETATE
     Indication: PRECOCIOUS PUBERTY
     Route: 065
     Dates: start: 20150120

REACTIONS (4)
  - Miliaria [Recovered/Resolved]
  - Rash maculo-papular [Recovered/Resolved]
  - Urticaria [Recovered/Resolved]
  - Implant site rash [Recovered/Resolved]

NARRATIVE: CASE EVENT DATE: 201501
